FAERS Safety Report 10171382 (Version 1)
Quarter: 2014Q2

REPORT INFORMATION
  Report Type: Spontaneous
  Country: US (occurrence: None)
  Receive Date: 20140513
  Receipt Date: 20140513
  Transmission Date: 20141212
  Serious: Yes (Other)
  Sender: FDA-Public Use
  Company Number: None

PATIENT
  Age: 73 Year
  Sex: Male
  Weight: 81.65 kg

DRUGS (1)
  1. MEFORMIN HCL 850 MG ZYDUS PHAR [Suspect]
     Indication: DIABETES MELLITUS
     Route: 048
     Dates: start: 201402, end: 20140314

REACTIONS (2)
  - Product quality issue [None]
  - Diabetes mellitus inadequate control [None]
